FAERS Safety Report 8153285-2 (Version None)
Quarter: 2012Q1

REPORT INFORMATION
  Report Type: 
  Country: None (occurrence: None)
  Receive Date: 20120221
  Receipt Date: 20120212
  Transmission Date: 20120608
  Serious: Yes (Hospitalization, Other)
  Sender: FDA-Public Use
  Company Number: UA-US-EMD SERONO, INC.-7113229

PATIENT
  Age: 13 Year
  Sex: Female

DRUGS (1)
  1. INTERFERON BETA NOS [Suspect]
     Indication: RELAPSING-REMITTING MULTIPLE SCLEROSIS
     Dates: start: 20110101

REACTIONS (6)
  - BLOOD PRESSURE INCREASED [None]
  - PARAPLEGIA [None]
  - BLADDER SPHINCTER ATONY [None]
  - DRUG INEFFECTIVE [None]
  - NEUROMYELITIS OPTICA [None]
  - PYREXIA [None]
